FAERS Safety Report 25030371 (Version 7)
Quarter: 2025Q2

REPORT INFORMATION
  Report Type: Report from Study
  Country: US (occurrence: US)
  Receive Date: 20250303
  Receipt Date: 20250610
  Transmission Date: 20250717
  Serious: Yes (Other)
  Sender: GILEAD
  Company Number: US-GILEAD-2025-0705648

PATIENT
  Age: 57 Year
  Sex: Female

DRUGS (8)
  1. AMBRISENTAN [Suspect]
     Active Substance: AMBRISENTAN
     Indication: Pulmonary hypertension
     Dosage: 10 MG, QD
     Route: 048
     Dates: start: 20190925
  2. AMBRISENTAN [Suspect]
     Active Substance: AMBRISENTAN
     Indication: Pulmonary arterial hypertension
  3. REVATIO [Suspect]
     Active Substance: SILDENAFIL CITRATE
     Indication: Product used for unknown indication
     Route: 065
  4. TYVASO [Suspect]
     Active Substance: TREPROSTINIL
     Indication: Product used for unknown indication
     Route: 065
  5. ONDANSETRON [Concomitant]
     Active Substance: ONDANSETRON
  6. IOHEXOL [Concomitant]
     Active Substance: IOHEXOL
  7. CYCLOBENZAPRINE [Concomitant]
     Active Substance: CYCLOBENZAPRINE
  8. LIDOCAINE [Concomitant]
     Active Substance: LIDOCAINE

REACTIONS (19)
  - Sepsis [Unknown]
  - Musculoskeletal pain [Unknown]
  - Oropharyngeal pain [Unknown]
  - Paranasal sinus discomfort [Unknown]
  - Nasopharyngitis [Unknown]
  - Bronchitis [Not Recovered/Not Resolved]
  - Pruritus [Unknown]
  - Hypersensitivity [Unknown]
  - Gastrooesophageal reflux disease [Unknown]
  - Muscle disorder [Unknown]
  - Fatigue [Unknown]
  - Pollakiuria [Unknown]
  - Flank pain [Unknown]
  - Rash [Unknown]
  - Blister [Unknown]
  - Blood pressure increased [Unknown]
  - Burning sensation [Unknown]
  - Pain [Unknown]
  - Heart rate increased [Unknown]

NARRATIVE: CASE EVENT DATE: 20250528
